FAERS Safety Report 20646230 (Version 2)
Quarter: 2022Q2

REPORT INFORMATION
  Report Type: Spontaneous
  Country: US (occurrence: US)
  Receive Date: 20220329
  Receipt Date: 20220405
  Transmission Date: 20220721
  Serious: Yes (Other)
  Sender: FDA-Public Use
  Company Number: US-BIOCODEX2-2022000207

PATIENT

DRUGS (12)
  1. DIACOMIT [Suspect]
     Active Substance: STIRIPENTOL
     Indication: Severe myoclonic epilepsy of infancy
     Dosage: DISSOLVE 1 PACKET IN 25ML OF WATER, STIR FOR 3-5 MINUTES UNTIL POWDER DISSOLVED. GIVE 4 ML (40MG) IN
     Route: 050
     Dates: start: 20190703
  2. DIACOMIT [Suspect]
     Active Substance: STIRIPENTOL
     Indication: Partial seizures
  3. BANZEL [Concomitant]
     Active Substance: RUFINAMIDE
     Indication: Product used for unknown indication
     Route: 065
  4. BANZEL [Concomitant]
     Active Substance: RUFINAMIDE
     Route: 065
  5. SABRIL [Concomitant]
     Active Substance: VIGABATRIN
     Indication: Product used for unknown indication
     Route: 065
  6. SABRIL [Concomitant]
     Active Substance: VIGABATRIN
     Route: 065
  7. IRON [Concomitant]
     Active Substance: IRON
     Indication: Product used for unknown indication
     Route: 065
  8. IRON [Concomitant]
     Active Substance: IRON
     Route: 065
  9. MIDAZOLAM HYDROCHLORIDE [Concomitant]
     Active Substance: MIDAZOLAM HYDROCHLORIDE
     Indication: Product used for unknown indication
     Route: 065
  10. MIDAZOLAM HYDROCHLORIDE [Concomitant]
     Active Substance: MIDAZOLAM HYDROCHLORIDE
     Route: 065
  11. PHENOBARBITAL [Concomitant]
     Active Substance: PHENOBARBITAL
     Indication: Product used for unknown indication
     Route: 065
  12. PHENOBARBITAL [Concomitant]
     Active Substance: PHENOBARBITAL
     Route: 065

REACTIONS (6)
  - Seizure [Unknown]
  - Condition aggravated [Unknown]
  - Hypertonia [Unknown]
  - Drug ineffective [Unknown]
  - Somnolence [Recovering/Resolving]
  - Product use in unapproved indication [Unknown]
